FAERS Safety Report 23124293 (Version 1)
Quarter: 2023Q4

REPORT INFORMATION
  Report Type: Other
  Country: CN (occurrence: CN)
  Receive Date: 20231030
  Receipt Date: 20231030
  Transmission Date: 20240109
  Serious: Yes (Hospitalization)
  Sender: FDA-Public Use
  Company Number: CN-002147023-NVSC2023CN228282

PATIENT

DRUGS (1)
  1. RUXOLITINIB [Suspect]
     Active Substance: RUXOLITINIB
     Indication: Myelofibrosis
     Dosage: 5 MG, TID
     Route: 048
     Dates: start: 20220718, end: 20231018

REACTIONS (7)
  - Asthenia [Unknown]
  - Dizziness [Unknown]
  - Immune system disorder [Unknown]
  - Urinary tract infection [Recovering/Resolving]
  - Lymphocyte count increased [Unknown]
  - Neutrophil count increased [Unknown]
  - White blood cell count increased [Unknown]

NARRATIVE: CASE EVENT DATE: 20231013
